FAERS Safety Report 9611343 (Version 4)
Quarter: 2014Q1

REPORT INFORMATION
  Report Type: Spontaneous
  Country: US (occurrence: US)
  Receive Date: 20131010
  Receipt Date: 20140211
  Transmission Date: 20141002
  Serious: Yes (Death)
  Sender: FDA-Public Use
  Company Number: US-BIOGENIDEC-2013BI095434

PATIENT
  Age: 62 Year
  Sex: Female

DRUGS (10)
  1. TECFIDERA [Suspect]
     Indication: MULTIPLE SCLEROSIS
     Route: 048
     Dates: start: 20130830, end: 20130905
  2. TECFIDERA [Suspect]
     Indication: MULTIPLE SCLEROSIS
     Route: 048
     Dates: start: 20130906, end: 20130926
  3. AMLODIPINE [Concomitant]
  4. FLUOXETINE [Concomitant]
  5. GABAPENTIN [Concomitant]
  6. METOPROLOL [Concomitant]
  7. MS CONTIN [Concomitant]
  8. PANTOPRAZOLE [Concomitant]
  9. IBUPROFEN [Concomitant]
  10. LOPERAMIDE [Concomitant]

REACTIONS (1)
  - Death [Fatal]
